FAERS Safety Report 4635669-X (Version None)
Quarter: 2005Q2

REPORT INFORMATION
  Report Type: 
  Country: None (occurrence: None)
  Receive Date: 20050414
  Receipt Date: 20050331
  Transmission Date: 20051028
  Serious: Yes (Hospitalization, Other)
  Sender: FDA-Public Use
  Company Number: HQWYE599831MAR05

PATIENT
  Age: 38 Year
  Sex: Male

DRUGS (4)
  1. ADVIL [Suspect]
     Indication: HEADACHE
     Dosage: 1200 MG DAILY ORAL
     Route: 048
     Dates: start: 20041210, end: 20050110
  2. COAPROVEL (IRBESARTAN/HYDROCHLOROTHIAZIDE,) [Suspect]
     Indication: HYPERTENSION
     Dates: start: 20030101, end: 20050110
  3. TENORMIN [Concomitant]
  4. ZYRTEC [Concomitant]

REACTIONS (12)
  - ANGIONEUROTIC OEDEMA [None]
  - CHEST PAIN [None]
  - ERYTHEMA [None]
  - EYELID OEDEMA [None]
  - FACE OEDEMA [None]
  - LOCALISED OEDEMA [None]
  - OEDEMA PERIPHERAL [None]
  - PHARYNGEAL OEDEMA [None]
  - PURPURA [None]
  - SMALL BOWEL ANGIOEDEMA [None]
  - VERTIGO [None]
  - VOMITING [None]
